FAERS Safety Report 6815463-1 (Version None)
Quarter: 2010Q3

REPORT INFORMATION
  Report Type: 
  Country: None (occurrence: None)
  Receive Date: 20100702
  Receipt Date: 20100621
  Transmission Date: 20110219
  Serious: Yes (Hospitalization)
  Sender: FDA-Public Use
  Company Number: US-JNJFOC-20100201800

PATIENT
  Sex: Male
  Weight: 27.4 kg

DRUGS (9)
  1. REMICADE [Suspect]
     Indication: CROHN'S DISEASE
     Route: 042
  2. REMICADE [Suspect]
     Route: 042
  3. REMICADE [Suspect]
     Route: 042
  4. 5-ASA [Concomitant]
  5. METRONIDAZOLE [Concomitant]
  6. METRONIDAZOLE [Concomitant]
  7. CIPRO [Concomitant]
  8. SARGRAMOSTIM [Concomitant]
  9. METHOTREXATE [Concomitant]

REACTIONS (8)
  - ANAEMIA [None]
  - CONDITION AGGRAVATED [None]
  - CROHN'S DISEASE [None]
  - DIARRHOEA [None]
  - MALNUTRITION [None]
  - METABOLIC ALKALOSIS [None]
  - RECTAL HAEMORRHAGE [None]
  - VOMITING [None]
